FAERS Safety Report 23946598 (Version 1)
Quarter: 2024Q2

REPORT INFORMATION
  Report Type: Spontaneous
  Country: US (occurrence: None)
  Receive Date: 20240606
  Receipt Date: 20240606
  Transmission Date: 20240716
  Serious: Yes (Congenital Anomaly)
  Sender: FDA-Public Use
  Company Number: None

PATIENT
  Age: 7 Week
  Sex: Male
  Weight: 2330 kg

DRUGS (11)
  1. SERTRALINE [Suspect]
     Active Substance: SERTRALINE HYDROCHLORIDE
  2. maternal: alprazolam [Concomitant]
  3. maternal: clonidine [Concomitant]
  4. maternal: amphetamine mix [Concomitant]
  5. SERTRALINE [Concomitant]
     Active Substance: SERTRALINE HYDROCHLORIDE
  6. maternal: rizatriptan [Concomitant]
  7. maternal: promethazine [Concomitant]
  8. maternal: amoxicillin / clavulanic acid [Concomitant]
  9. maternal: cephalexin [Concomitant]
  10. maternal: methylprednisolone [Concomitant]
  11. maternal: clindamycin / benzoyl peroxide [Concomitant]

REACTIONS (5)
  - Maternal drugs affecting foetus [None]
  - Inguinal hernia [None]
  - Haematochezia [None]
  - Haematochezia [None]
  - Constipation [None]

NARRATIVE: CASE EVENT DATE: 20230810
